FAERS Safety Report 19815528 (Version 1)
Quarter: 2021Q3

REPORT INFORMATION
  Report Type: Spontaneous
  Country: ES (occurrence: ES)
  Receive Date: 20210909
  Receipt Date: 20210909
  Transmission Date: 20211014
  Serious: Yes (Disabling)
  Sender: FDA-Public Use
  Company Number: ES-MYLANLABS-2021M1059747

PATIENT
  Age: 11 Year
  Sex: Male

DRUGS (2)
  1. ZONISAMIDE. [Suspect]
     Active Substance: ZONISAMIDE
     Indication: FRONTAL LOBE EPILEPSY
     Dosage: 300 MILLIGRAM, BID
  2. LACOSAMIDA [Concomitant]
     Active Substance: LACOSAMIDE
     Indication: FRONTAL LOBE EPILEPSY
     Dosage: 200 MILLIGRAM, BID

REACTIONS (2)
  - Intellectual disability [Recovered/Resolved]
  - Speech disorder developmental [Recovered/Resolved]
